FAERS Safety Report 5994295-0 (Version None)
Quarter: 2008Q4

REPORT INFORMATION
  Report Type: 
  Country: None (occurrence: None)
  Receive Date: 20081212
  Receipt Date: 20080908
  Transmission Date: 20090506
  Serious: No
  Sender: FDA-Public Use
  Company Number: US-ABBOTT-08P-163-0474812-00

PATIENT
  Sex: Female
  Weight: 61.744 kg

DRUGS (5)
  1. HUMIRA [Suspect]
     Indication: RHEUMATOID ARTHRITIS
     Route: 050
     Dates: start: 20030101
  2. LISINOPRIL [Concomitant]
     Indication: HYPERTENSION
     Route: 048
  3. ATENOLOL [Concomitant]
     Indication: HYPERTENSION
     Route: 048
     Dates: start: 20010101
  4. GLYBURIDE [Concomitant]
     Indication: TYPE 2 DIABETES MELLITUS
     Route: 048
  5. METFORMIN HCL [Concomitant]
     Indication: TYPE 2 DIABETES MELLITUS
     Route: 048

REACTIONS (6)
  - BACTERIAL INFECTION [None]
  - BRONCHITIS [None]
  - BURSITIS [None]
  - JOINT SWELLING [None]
  - OEDEMA PERIPHERAL [None]
  - VIRAL INFECTION [None]
